FAERS Safety Report 14170293 (Version 1)
Quarter: 2017Q4

REPORT INFORMATION
  Report Type: Spontaneous
  Country: US (occurrence: US)
  Receive Date: 20171108
  Receipt Date: 20171108
  Transmission Date: 20180321
  Serious: No
  Sender: FDA-Public Use
  Company Number: US-BAYER-2017-215110

PATIENT
  Age: 41 Year
  Sex: Female
  Weight: 66 kg

DRUGS (1)
  1. MIRALAX [Suspect]
     Active Substance: POLYETHYLENE GLYCOL 3350
     Dosage: UNK,3/4 OF A CAPFUL IN WATER
     Route: 048
     Dates: start: 20171105, end: 20171105

REACTIONS (4)
  - Product use issue [Unknown]
  - Poor quality drug administered [Unknown]
  - Product odour abnormal [None]
  - Product taste abnormal [Unknown]

NARRATIVE: CASE EVENT DATE: 20171105
